FAERS Safety Report 8488841-5 (Version None)
Quarter: 2012Q3

REPORT INFORMATION
  Report Type: 
  Country: None (occurrence: None)
  Receive Date: 20120705
  Receipt Date: 20120625
  Transmission Date: 20120928
  Serious: Yes (Hospitalization, Other)
  Sender: FDA-Public Use
  Company Number: FR-VERTEX PHARMACEUTICALS INC.-000000000000001039

PATIENT
  Sex: Male

DRUGS (3)
  1. INCIVO [Suspect]
     Indication: PRODUCT USED FOR UNKNOWN INDICATION
     Dosage: DOSAGE FORM: TABLET, TREATMENT DURATION: APPROXIMATELY 10 WEEKS
     Route: 048
     Dates: end: 20120613
  2. PEGINTERFERON ALFA-2A [Concomitant]
     Indication: PRODUCT USED FOR UNKNOWN INDICATION
     Dosage: DOSAGE FORM: UNSPECIFIED
     Route: 065
     Dates: end: 20120613
  3. RIBAVIRINE [Concomitant]
     Indication: PRODUCT USED FOR UNKNOWN INDICATION
     Dosage: DOSAGE FORM: UNSPECIFIED
     Route: 065
     Dates: end: 20120613

REACTIONS (4)
  - ANAEMIA [None]
  - RASH [None]
  - PYREXIA [None]
  - THROMBOCYTOPENIA [None]
